FAERS Safety Report 19184263 (Version 1)
Quarter: 2021Q2

REPORT INFORMATION
  Report Type: Spontaneous
  Country: US (occurrence: US)
  Receive Date: 20210427
  Receipt Date: 20210427
  Transmission Date: 20210717
  Serious: Yes (Other)
  Sender: FDA-Public Use
  Company Number: US-GLAXOSMITHKLINE-US2021GSK092864

PATIENT
  Sex: Female

DRUGS (24)
  1. ZANTAC [Suspect]
     Active Substance: RANITIDINE HYDROCHLORIDE
     Indication: GASTRIC ULCER
     Dosage: UNK, DAILY/WEEKLY/OCCASIONAL
     Route: 065
     Dates: start: 198501, end: 200001
  2. RANITIDINE. [Suspect]
     Active Substance: RANITIDINE
     Indication: GASTRIC ULCER
     Dosage: UNK, DAILY/WEEKLY/OCCASIONAL
     Route: 065
     Dates: start: 198501, end: 200001
  3. ZANTAC [Suspect]
     Active Substance: RANITIDINE HYDROCHLORIDE
     Indication: GASTRIC ULCER
     Dosage: UNK, DAILY/WEEKLY/OCCASIONAL
     Route: 065
     Dates: start: 198501, end: 200001
  4. ZANTAC [Suspect]
     Active Substance: RANITIDINE HYDROCHLORIDE
     Indication: NAUSEA
  5. ZANTAC [Suspect]
     Active Substance: RANITIDINE HYDROCHLORIDE
     Indication: GASTRIC ULCER
     Dosage: UNK, DAILY/WEEKLY/OCCASIONAL
     Route: 065
     Dates: start: 198501, end: 200001
  6. ZANTAC [Suspect]
     Active Substance: RANITIDINE HYDROCHLORIDE
     Indication: NAUSEA
  7. RANITIDINE TABLETS [Suspect]
     Active Substance: RANITIDINE HYDROCHLORIDE
     Indication: PAIN
  8. RANITIDINE CAPSULE [Suspect]
     Active Substance: RANITIDINE
     Indication: PAIN
  9. ZANTAC [Suspect]
     Active Substance: RANITIDINE HYDROCHLORIDE
     Indication: NAUSEA
  10. RANITIDINE. [Suspect]
     Active Substance: RANITIDINE
     Indication: GASTRIC ULCER
     Dosage: UNK, DAILY/WEEKLY/OCCASIONAL
     Route: 065
     Dates: start: 198501, end: 200001
  11. RANITIDINE HYDROCHLORIDE. [Suspect]
     Active Substance: RANITIDINE HYDROCHLORIDE
     Indication: GASTRIC ULCER
     Dosage: UNK, DAILY/WEEKLY/OCCASIONAL
     Route: 065
     Dates: start: 198501, end: 200001
  12. RANITIDINE. [Suspect]
     Active Substance: RANITIDINE
     Indication: NAUSEA
  13. RANITIDINE. [Suspect]
     Active Substance: RANITIDINE
     Indication: PAIN
  14. RANITIDINE TABLETS [Suspect]
     Active Substance: RANITIDINE HYDROCHLORIDE
     Indication: GASTRIC ULCER
     Dosage: UNK, DAILY/WEEKLY/OCCASIONAL
     Route: 065
     Dates: start: 198501, end: 200001
  15. ZANTAC [Suspect]
     Active Substance: RANITIDINE HYDROCHLORIDE
     Indication: PAIN
  16. ZANTAC [Suspect]
     Active Substance: RANITIDINE HYDROCHLORIDE
     Indication: PAIN
  17. RANITIDINE HYDROCHLORIDE. [Suspect]
     Active Substance: RANITIDINE HYDROCHLORIDE
     Indication: NAUSEA
  18. ZANTAC [Suspect]
     Active Substance: RANITIDINE HYDROCHLORIDE
     Indication: PAIN
  19. RANITIDINE CAPSULE [Suspect]
     Active Substance: RANITIDINE
     Indication: GASTRIC ULCER
     Dosage: UNK, DAILY/WEEKLY/OCCASIONAL
     Route: 065
     Dates: start: 198501, end: 200001
  20. RANITIDINE CAPSULE [Suspect]
     Active Substance: RANITIDINE
     Indication: NAUSEA
  21. RANITIDINE. [Suspect]
     Active Substance: RANITIDINE
     Indication: PAIN
  22. RANITIDINE. [Suspect]
     Active Substance: RANITIDINE
     Indication: NAUSEA
  23. RANITIDINE HYDROCHLORIDE. [Suspect]
     Active Substance: RANITIDINE HYDROCHLORIDE
     Indication: PAIN
  24. RANITIDINE TABLETS [Suspect]
     Active Substance: RANITIDINE HYDROCHLORIDE
     Indication: NAUSEA

REACTIONS (1)
  - Breast cancer [Unknown]
